FAERS Safety Report 9550501 (Version 1)
Quarter: 2013Q3

REPORT INFORMATION
  Report Type: Spontaneous
  Country: US (occurrence: US)
  Receive Date: 20130924
  Receipt Date: 20130924
  Transmission Date: 20140515
  Serious: No
  Sender: FDA-Public Use
  Company Number: US-SANOFI-AVENTIS-2013SA025048

PATIENT
  Age: 68 Year
  Sex: Female

DRUGS (4)
  1. AUBAGIO [Suspect]
     Indication: MULTIPLE SCLEROSIS
     Dosage: PRODUCT STARTED ON LATE FEBRUARY 2013.
     Route: 048
     Dates: start: 201302
  2. AUBAGIO [Suspect]
     Indication: MULTIPLE SCLEROSIS
     Dosage: PRODUCT STARTED ON LATE FEBRUARY 2013.
     Route: 048
     Dates: start: 201302
  3. SOLU-MEDROL [Concomitant]
     Indication: PAIN
     Route: 065
     Dates: start: 2004, end: 201301
  4. SOLU-MEDROL [Concomitant]
     Indication: PAIN
     Route: 065
     Dates: start: 20130717

REACTIONS (5)
  - Ligament sprain [Unknown]
  - Weight decreased [Unknown]
  - Decreased appetite [Not Recovered/Not Resolved]
  - Dysgeusia [Unknown]
  - Arthralgia [Unknown]
